FAERS Safety Report 24205397 (Version 1)
Quarter: 2024Q3

REPORT INFORMATION
  Report Type: Spontaneous
  Country: CN (occurrence: None)
  Receive Date: 20240813
  Receipt Date: 20240813
  Transmission Date: 20241017
  Serious: Yes (Other)
  Sender: ASTRAZENECA
  Company Number: 2024A179047

PATIENT
  Age: 97 Year
  Sex: Female

DRUGS (5)
  1. BREZTRI [Suspect]
     Active Substance: BUDESONIDE\FORMOTEROL\GLYCOPYRROLATE
     Dosage: TWO ACTUATIONS EACH TIME
     Route: 055
  2. PREDNISONE [Concomitant]
     Active Substance: PREDNISONE
     Indication: Atrial fibrillation
  3. PREDNISONE [Concomitant]
     Active Substance: PREDNISONE
     Indication: Cardiac failure
  4. PREDNISONE [Concomitant]
     Active Substance: PREDNISONE
     Indication: Respiratory failure
  5. PREDNISONE [Concomitant]
     Active Substance: PREDNISONE
     Indication: Pulmonary function test decreased

REACTIONS (4)
  - Blood pressure increased [Recovering/Resolving]
  - Discomfort [Recovering/Resolving]
  - Prolonged expiration [Recovering/Resolving]
  - Heart rate increased [Recovering/Resolving]
